FAERS Safety Report 16847385 (Version 2)
Quarter: 2019Q4

REPORT INFORMATION
  Report Type: Spontaneous
  Country: US (occurrence: US)
  Receive Date: 20190924
  Receipt Date: 20191018
  Transmission Date: 20200122
  Serious: No
  Sender: FDA-Public Use
  Company Number: US-B.I. PHARMACEUTICALS,INC./RIDGEFIELD-2019-US-103174

PATIENT
  Age: 67 Year
  Sex: Female

DRUGS (4)
  1. FLOVENT [Concomitant]
     Active Substance: FLUTICASONE PROPIONATE
     Indication: CHRONIC OBSTRUCTIVE PULMONARY DISEASE
     Route: 065
  2. COMBIVENT [Suspect]
     Active Substance: ALBUTEROL SULFATE\IPRATROPIUM BROMIDE
     Indication: CHRONIC OBSTRUCTIVE PULMONARY DISEASE
     Dosage: 1 PUFF EVERY 6 HOURS
     Route: 065
     Dates: start: 2011
  3. EPIPEN [Concomitant]
     Active Substance: EPINEPHRINE
     Indication: LIP SWELLING
     Route: 065
     Dates: start: 201610
  4. EPIPEN [Concomitant]
     Active Substance: EPINEPHRINE
     Indication: SWOLLEN TONGUE

REACTIONS (4)
  - Oropharyngeal pain [Not Recovered/Not Resolved]
  - Swollen tongue [Recovered/Resolved]
  - Product quality issue [Unknown]
  - Lip swelling [Recovered/Resolved]

NARRATIVE: CASE EVENT DATE: 201610
